FAERS Safety Report 6008028-5 (Version None)
Quarter: 2008Q4

REPORT INFORMATION
  Report Type: 
  Country: None (occurrence: None)
  Receive Date: 20081217
  Receipt Date: 20081208
  Transmission Date: 20090506
  Serious: Yes (Other)
  Sender: FDA-Public Use
  Company Number: US-AMGEN-US323108

PATIENT
  Sex: Male

DRUGS (3)
  1. PROCRIT [Suspect]
     Indication: RENAL FAILURE CHRONIC
     Dates: start: 20080101
  2. PROCRIT [Suspect]
     Dates: start: 20080101, end: 20080101
  3. ARANESP [Suspect]
     Indication: RENAL FAILURE CHRONIC
     Dates: end: 20081101

REACTIONS (4)
  - ASTHENIA [None]
  - CARDIAC FAILURE [None]
  - FATIGUE [None]
  - FEELING ABNORMAL [None]
